FAERS Safety Report 25831038 (Version 2)
Quarter: 2025Q4

REPORT INFORMATION
  Report Type: Spontaneous
  Country: GB (occurrence: GB)
  Receive Date: 20250922
  Receipt Date: 20251009
  Transmission Date: 20260118
  Serious: Yes (Other)
  Sender: MYLAN
  Company Number: GB-MYLANLABS-2025M1075607

PATIENT
  Sex: Male

DRUGS (13)
  1. CLOZAPINE [Suspect]
     Active Substance: CLOZAPINE
     Indication: Schizophrenia
     Dosage: UNK
  2. CLOZAPINE [Suspect]
     Active Substance: CLOZAPINE
     Dosage: 175 MILLIGRAM, AM
     Dates: start: 20250901
  3. CLOZAPINE [Suspect]
     Active Substance: CLOZAPINE
     Dosage: 175 MILLIGRAM, BID
  4. CLOZAPINE [Suspect]
     Active Substance: CLOZAPINE
     Dosage: UNK, BID (75 MG MANE AND 100 MG NOCTE)
  5. CLOZAPINE [Suspect]
     Active Substance: CLOZAPINE
     Dosage: 50 MILLIGRAM (DOSE REDUCED)
  6. TAMSULOSIN [Concomitant]
     Active Substance: TAMSULOSIN
     Dosage: 400 MILLIGRAM, QD
     Dates: start: 20240109
  7. POLYETHYLENE GLYCOLS [Concomitant]
     Active Substance: POLYETHYLENE GLYCOLS
     Dosage: UNK, BID (ONE SACHET)
     Dates: start: 20250908
  8. MIRTAZAPINE [Concomitant]
     Active Substance: MIRTAZAPINE
     Dosage: 45 MILLIGRAM, QD
     Dates: start: 20250617
  9. OMEPRAZOLE [Concomitant]
     Active Substance: OMEPRAZOLE
     Dosage: 40 MILLIGRAM, QD
     Dates: start: 20250819
  10. SENNA [Concomitant]
     Active Substance: SENNOSIDES
     Dosage: 15 MILLIGRAM, PM
     Dates: start: 20250630
  11. SCOPOLAMINE HYDROBROMIDE [Concomitant]
     Active Substance: SCOPOLAMINE HYDROBROMIDE
     Dosage: 300 MILLIGRAM, TID
     Dates: start: 20250829
  12. MORPHINE [Concomitant]
     Active Substance: MORPHINE
     Dosage: 2 MILLIGRAM
  13. MIDAZOLAM [Concomitant]
     Active Substance: MIDAZOLAM
     Dosage: 2 MILLIGRAM

REACTIONS (5)
  - Lower respiratory tract infection [Unknown]
  - Neutrophil count abnormal [Recovered/Resolved]
  - Hypophagia [Recovering/Resolving]
  - Incorrect dose administered [Unknown]
  - Drug dose titration not performed [Unknown]
